FAERS Safety Report 8351311-9 (Version None)
Quarter: 2012Q2

REPORT INFORMATION
  Report Type: 
  Country: None (occurrence: None)
  Receive Date: 20120510
  Receipt Date: 20120419
  Transmission Date: 20120825
  Serious: Yes (Other)
  Sender: FDA-Public Use
  Company Number: US-BAXTER-2012BAX003628

PATIENT
  Sex: Female
  Weight: 56.16 kg

DRUGS (7)
  1. DIANEAL [Suspect]
     Route: 033
     Dates: start: 20120312
  2. METOPROLOL TARTRATE [Concomitant]
     Indication: BLOOD PRESSURE
     Route: 048
  3. LANTUS [Concomitant]
     Route: 058
  4. INSULIN [Concomitant]
     Dosage: PER SLIDING SCALE
  5. DIANEAL [Suspect]
     Route: 033
  6. INSULIN [Concomitant]
     Route: 058
  7. INSULIN [Concomitant]
     Route: 058

REACTIONS (3)
  - CONVULSION [None]
  - BLOOD GLUCOSE DECREASED [None]
  - DECREASED APPETITE [None]
